FAERS Safety Report 13717292 (Version 3)
Quarter: 2017Q3

REPORT INFORMATION
  Report Type: Report from Study
  Country: JP (occurrence: JP)
  Receive Date: 20170705
  Receipt Date: 20170726
  Transmission Date: 20171127
  Serious: Yes (Hospitalization, Other)
  Sender: FDA-Public Use
  Company Number: JP-VIIV HEALTHCARE LIMITED-JP2017JPN071273

PATIENT
  Age: 36 Year
  Sex: Male

DRUGS (6)
  1. ROZEREM [Concomitant]
     Active Substance: RAMELTEON
     Indication: INSOMNIA
     Dosage: 8 MG, QD
     Dates: start: 201402
  2. WYPAX [Concomitant]
     Active Substance: LORAZEPAM
     Indication: ADJUSTMENT DISORDER
     Dosage: 0.5 MG, PRN
     Dates: start: 201402
  3. ABACAVIRSULPHATE+DOLUTEGRAVIR+LAMIVUDINE [Suspect]
     Active Substance: ABACAVIR SULFATE\DOLUTEGRAVIR SODIUM\LAMIVUDINE
     Indication: HIV INFECTION
     Dosage: 1 DF, QD
     Route: 048
     Dates: start: 20160106, end: 20160125
  4. ZOLPIDEM TARTRATE. [Concomitant]
     Active Substance: ZOLPIDEM TARTRATE
     Indication: INSOMNIA
     Dosage: 10 MG, PRN
     Dates: start: 201402
  5. ABACAVIRSULPHATE+DOLUTEGRAVIR+LAMIVUDINE [Suspect]
     Active Substance: ABACAVIR SULFATE\DOLUTEGRAVIR SODIUM\LAMIVUDINE
     Dosage: 1 DF, QD
     Route: 048
     Dates: start: 20160224
  6. ZOLPIDEM TARTRATE. [Concomitant]
     Active Substance: ZOLPIDEM TARTRATE
     Dosage: 5 MG, PRN

REACTIONS (12)
  - Rash generalised [Recovered/Resolved]
  - Shock [Recovering/Resolving]
  - Thrombocytopenia [Unknown]
  - Headache [Recovered/Resolved]
  - Drug hypersensitivity [Recovered/Resolved]
  - Human herpesvirus 6 infection [Unknown]
  - Generalised erythema [Recovered/Resolved]
  - Altered state of consciousness [Recovering/Resolving]
  - Pruritus generalised [Recovered/Resolved]
  - Tachycardia [Unknown]
  - Pyrexia [Recovered/Resolved]
  - Circulatory collapse [Unknown]

NARRATIVE: CASE EVENT DATE: 20160121
